FAERS Safety Report 23995867 (Version 1)
Quarter: 2024Q2

REPORT INFORMATION
  Report Type: Spontaneous
  Country: CH (occurrence: CH)
  Receive Date: 20240620
  Receipt Date: 20240620
  Transmission Date: 20240716
  Serious: Yes (Other)
  Sender: FDA-Public Use
  Company Number: None

PATIENT
  Age: 21 Year
  Sex: Male

DRUGS (3)
  1. VINCRISTINE [Suspect]
     Active Substance: VINCRISTINE
     Indication: Acute lymphocytic leukaemia
     Dosage: TIME INTERVAL: CYCLICAL: VINCRISTINE TEVA
     Route: 042
     Dates: start: 20240424, end: 20240501
  2. NOXAFIL [Suspect]
     Active Substance: POSACONAZOLE
     Indication: Antifungal prophylaxis
     Route: 048
     Dates: start: 2024, end: 20240510
  3. ASPARAGINASE [Suspect]
     Active Substance: ASPARAGINASE
     Indication: Acute lymphocytic leukaemia
     Dosage: TIME INTERVAL: CYCLICAL: ADMINISTERED 01.05.24, 03.05.24, 05.05.24, PAUSED FROM 10.05.24, RESTART...
     Route: 042
     Dates: start: 20240501, end: 20240505

REACTIONS (3)
  - Neuropathy peripheral [Recovering/Resolving]
  - Drug interaction [Recovering/Resolving]
  - Autonomic neuropathy [Recovering/Resolving]

NARRATIVE: CASE EVENT DATE: 20240101
